FAERS Safety Report 7442501-8 (Version None)
Quarter: 2011Q2

REPORT INFORMATION
  Report Type: 
  Country: None (occurrence: None)
  Receive Date: 20110428
  Receipt Date: 20110413
  Transmission Date: 20111010
  Serious: Yes (Hospitalization, Other)
  Sender: FDA-Public Use
  Company Number: US-ROCHE-773629

PATIENT
  Sex: Female

DRUGS (23)
  1. TAXOL [Concomitant]
     Indication: BREAST CANCER
     Dosage: UNK
     Dates: start: 20091202
  2. LORAZEPAM [Concomitant]
     Dosage: 1 MG, QD
  3. HERCEPTIN [Suspect]
     Indication: BREAST CANCER
     Dosage: UNK
     Route: 065
     Dates: start: 20091202
  4. CYCLOPHOSPHAMIDE [Concomitant]
     Indication: BREAST CANCER
     Dosage: UNK
     Dates: start: 20100210
  5. LEXAPRO [Concomitant]
     Dosage: 40 MG, QHS
  6. LIPITOR [Concomitant]
  7. PLAVIX [Concomitant]
  8. NITROSTAT [Concomitant]
  9. RAPTIVA [Suspect]
     Indication: PSORIASIS
     Dosage: 70 MG, 1/WEEK
     Route: 065
  10. PREDNISONE [Concomitant]
     Dosage: 30 MG, UNK
  11. TETRACYCLINE [Concomitant]
     Dosage: 500 MG, Q6H
  12. SORIATANE [Concomitant]
     Dosage: 25 MG, QD
     Route: 048
  13. PERCOCET [Concomitant]
  14. POTASSIUM [Concomitant]
  15. ZANTAC [Concomitant]
  16. TAXOL [Concomitant]
     Dosage: 60 MG/M2, UNK
     Dates: start: 20091230
  17. FLUOROURACIL [Concomitant]
     Indication: BREAST CANCER
     Dosage: UNK
     Dates: start: 20100210
  18. EPIRUBICIN [Concomitant]
     Indication: BREAST CANCER
     Dosage: UNK
     Dates: start: 20100210
  19. PREDNISONE [Concomitant]
     Dosage: 20 MG, UNK
  20. ASPIRIN [Concomitant]
  21. COREG [Concomitant]
  22. ATROVENT [Concomitant]
  23. FLOVENT [Concomitant]

REACTIONS (2)
  - PNEUMONIA [None]
  - MYOCARDIAL INFARCTION [None]
